FAERS Safety Report 12445591 (Version 3)
Quarter: 2018Q2

REPORT INFORMATION
  Report Type: Spontaneous
  Country: US (occurrence: US)
  Receive Date: 20160608
  Receipt Date: 20180603
  Transmission Date: 20180711
  Serious: No
  Sender: FDA-Public Use
  Company Number: US-JNJFOC-20160411676

PATIENT
  Age: 35 Year
  Sex: Male
  Weight: 133.81 kg

DRUGS (2)
  1. RISPERDAL CONSTA [Suspect]
     Active Substance: RISPERIDONE
     Indication: SCHIZOPHRENIA
     Dosage: EVERY OTHER MONDAY
     Route: 030
     Dates: start: 2016
  2. RISPERDAL CONSTA [Suspect]
     Active Substance: RISPERIDONE
     Indication: BIPOLAR DISORDER
     Dosage: EVERY OTHER MONDAY
     Route: 030
     Dates: start: 2016

REACTIONS (3)
  - Product container issue [Unknown]
  - Drug dose omission [Recovered/Resolved]
  - Device leakage [Unknown]

NARRATIVE: CASE EVENT DATE: 20160412
